FAERS Safety Report 5870515-8 (Version None)
Quarter: 2008Q3

REPORT INFORMATION
  Report Type: 
  Country: None (occurrence: None)
  Receive Date: 20080904
  Receipt Date: 20080825
  Transmission Date: 20090109
  Serious: Yes (Other)
  Sender: FDA-Public Use
  Company Number: BR-ABBOTT-08P-020-0472766-00

PATIENT
  Sex: Male
  Weight: 64 kg

DRUGS (4)
  1. DEPAKENE [Suspect]
     Indication: EPILEPSY
     Route: 048
     Dates: start: 19980101
  2. DEPAKENE [Suspect]
     Indication: CONVULSION
  3. PHENOBARBITAL TAB [Concomitant]
     Indication: EPILEPSY
     Route: 048
  4. PHENOBARBITAL TAB [Concomitant]
     Indication: CONVULSION

REACTIONS (11)
  - BURNING SENSATION [None]
  - DRUG INEFFECTIVE [None]
  - DUPUYTREN'S CONTRACTURE [None]
  - JOINT CREPITATION [None]
  - MICTURITION URGENCY [None]
  - NERVE DEGENERATION [None]
  - NEURALGIA [None]
  - PARTIAL SEIZURES [None]
  - ROAD TRAFFIC ACCIDENT [None]
  - SYNCOPE [None]
  - THIRST [None]
